FAERS Safety Report 12450894 (Version 3)
Quarter: 2016Q3

REPORT INFORMATION
  Report Type: Spontaneous
  Country: IN (occurrence: IN)
  Receive Date: 20160609
  Receipt Date: 20160708
  Transmission Date: 20161109
  Serious: Yes (Life-Threatening, Hospitalization, Other)
  Sender: FDA-Public Use
  Company Number: IN-SA-2016SA103764

PATIENT
  Age: 3 Year
  Sex: Female
  Weight: 13 kg

DRUGS (7)
  1. TAZOBACTAM/PIPERACILLIN [Concomitant]
     Indication: STAPHYLOCOCCAL INFECTION
  2. VANCOMYCIN [Suspect]
     Active Substance: VANCOMYCIN
     Indication: ENDOCARDITIS STAPHYLOCOCCAL
     Route: 065
  3. RIFAMPICIN [Suspect]
     Active Substance: RIFAMPIN
     Indication: ENDOCARDITIS STAPHYLOCOCCAL
     Route: 065
  4. VANCOMYCIN [Suspect]
     Active Substance: VANCOMYCIN
     Indication: SEPTIC SHOCK
     Route: 065
  5. VANCOMYCIN [Suspect]
     Active Substance: VANCOMYCIN
     Indication: STAPHYLOCOCCAL INFECTION
     Route: 065
  6. RIFAMPICIN [Suspect]
     Active Substance: RIFAMPIN
     Indication: STAPHYLOCOCCAL INFECTION
     Route: 065
  7. TAZOBACTAM/PIPERACILLIN [Concomitant]
     Indication: SEPTIC SHOCK

REACTIONS (13)
  - Cardiac valve vegetation [Recovering/Resolving]
  - Endocarditis staphylococcal [Recovering/Resolving]
  - Tricuspid valve incompetence [Recovering/Resolving]
  - Coagulopathy [Recovered/Resolved]
  - Hypokinesia [Recovering/Resolving]
  - Bacteraemia [Recovering/Resolving]
  - Drug ineffective [Unknown]
  - Condition aggravated [Recovered/Resolved]
  - Hypotension [Recovered/Resolved]
  - Staphylococcal infection [Recovering/Resolving]
  - Gastritis haemorrhagic [Unknown]
  - Acute kidney injury [Recovered/Resolved]
  - Left ventricular dysfunction [Recovered/Resolved]
